FAERS Safety Report 15300928 (Version 1)
Quarter: 2018Q3

REPORT INFORMATION
  Report Type: Spontaneous
  Country: GB (occurrence: GB)
  Receive Date: 20180821
  Receipt Date: 20180821
  Transmission Date: 20181010
  Serious: Yes (Other)
  Sender: FDA-Public Use
  Company Number: GB-ABBVIE-18K-167-2455246-00

PATIENT
  Age: 27 Year
  Sex: Female
  Weight: 57 kg

DRUGS (1)
  1. HUMIRA [Suspect]
     Active Substance: ADALIMUMAB
     Indication: CROHN^S DISEASE
     Dosage: CUMULATIVE DOSE TO FIRST REACTION: 82.85 MG
     Route: 058
     Dates: start: 20170130, end: 201805

REACTIONS (13)
  - Gingival abscess [Recovered/Resolved]
  - Swelling [Unknown]
  - Lymphadenopathy [Recovering/Resolving]
  - Pruritus [Recovering/Resolving]
  - Wound [Not Recovered/Not Resolved]
  - Purulent discharge [Unknown]
  - Rash [Recovering/Resolving]
  - Furuncle [Recovering/Resolving]
  - Skin ulcer [Not Recovered/Not Resolved]
  - Skin exfoliation [Recovering/Resolving]
  - Skin weeping [Not Recovered/Not Resolved]
  - Pain [Not Recovered/Not Resolved]
  - Rash pustular [Not Recovered/Not Resolved]

NARRATIVE: CASE EVENT DATE: 2017
